FAERS Safety Report 5536363-3 (Version None)
Quarter: 2007Q4

REPORT INFORMATION
  Report Type: 
  Country: None (occurrence: None)
  Receive Date: 20071206
  Receipt Date: 20071130
  Transmission Date: 20080405
  Serious: Yes (Other)
  Sender: FDA-Public Use
  Company Number: US-PFIZER INC-2007101508

PATIENT
  Sex: Female
  Weight: 56.7 kg

DRUGS (3)
  1. GEODON [Suspect]
     Indication: ANXIETY
  2. XANAX [Suspect]
  3. LEXAPRO [Concomitant]

REACTIONS (3)
  - ANXIETY [None]
  - DEPRESSION [None]
  - SUICIDAL IDEATION [None]
